FAERS Safety Report 21212546 (Version 2)
Quarter: 2022Q3

REPORT INFORMATION
  Report Type: Spontaneous
  Country: US (occurrence: US)
  Receive Date: 20220815
  Receipt Date: 20220826
  Transmission Date: 20221027
  Serious: No
  Sender: FDA-Public Use
  Company Number: US-PFIZER INC-PV202200042468

PATIENT
  Age: 88 Year
  Sex: Female
  Weight: 58.97 kg

DRUGS (3)
  1. IBRANCE [Suspect]
     Active Substance: PALBOCICLIB
     Indication: Breast cancer female
     Dosage: 100 MG, 1X/DAY (100MG TABLET BY MOUTH, ONCE A DAY AT NIGHT)
     Route: 048
  2. LETROZOLE [Concomitant]
     Active Substance: LETROZOLE
     Indication: Oestrogen therapy
     Dosage: 2.5 MG, 1X/DAY (2.5MG TABLET, TAKES ONE IN MORNING EVERYDAY FOR THREE MONTHS)
  3. LETROZOLE [Concomitant]
     Active Substance: LETROZOLE
     Indication: Hormone level abnormal

REACTIONS (8)
  - Illness [Unknown]
  - Pain in extremity [Unknown]
  - Dyspepsia [Unknown]
  - Pain [Unknown]
  - Erythema [Unknown]
  - Anger [Unknown]
  - Sleep disorder [Unknown]
  - Gait disturbance [Unknown]
